FAERS Safety Report 5076456-0 (Version None)
Quarter: 2006Q3

REPORT INFORMATION
  Report Type: 
  Country: None (occurrence: None)
  Receive Date: 20060810
  Receipt Date: 20060424
  Transmission Date: 20061208
  Serious: Yes (Hospitalization, Other)
  Sender: FDA-Public Use
  Company Number: US-BAYER-200611733BCC

PATIENT
  Age: 76 Year
  Sex: Female
  Weight: 64 kg

DRUGS (2)
  1. ALEVE [Suspect]
     Indication: RHEUMATOID ARTHRITIS
     Dosage: TOTAL DAILY DOSE: 660 MG  UNIT DOSE: 220 MG
     Route: 048
     Dates: start: 20060329, end: 20060401
  2. SYNTHROID [Concomitant]
     Dosage: UNIT DOSE: 100 ?G

REACTIONS (10)
  - ABDOMINAL PAIN [None]
  - BLOOD CHOLESTEROL INCREASED [None]
  - BOWEL MOVEMENT IRREGULARITY [None]
  - CHOLELITHIASIS [None]
  - CHOLESTASIS [None]
  - FATIGUE [None]
  - HEPATIC ENZYME INCREASED [None]
  - JAUNDICE [None]
  - MALAISE [None]
  - PRURITUS [None]
